FAERS Safety Report 21466813 (Version 2)
Quarter: 2022Q4

REPORT INFORMATION
  Report Type: Report from Study
  Country: US (occurrence: US)
  Receive Date: 20221017
  Receipt Date: 20221212
  Transmission Date: 20230112
  Serious: No
  Sender: FDA-Public Use
  Company Number: US-ABBVIE-4139239

PATIENT
  Age: 82 Year
  Sex: Female
  Weight: 49.895 kg

DRUGS (34)
  1. CREON [Suspect]
     Active Substance: PANCRELIPASE AMYLASE\PANCRELIPASE LIPASE\PANCRELIPASE PROTEASE
     Indication: Pancreatic failure
     Route: 048
     Dates: start: 20170117, end: 20220929
  2. CREON [Suspect]
     Active Substance: PANCRELIPASE AMYLASE\PANCRELIPASE LIPASE\PANCRELIPASE PROTEASE
     Indication: Pancreatic failure
     Route: 048
     Dates: start: 20220930
  3. MAGNESIUM [Concomitant]
     Active Substance: MAGNESIUM
     Indication: Product used for unknown indication
  4. VITAMIN E [Concomitant]
     Active Substance: .ALPHA.-TOCOPHEROL
     Indication: Vitamin supplementation
  5. VITAMIN K [Concomitant]
     Active Substance: PHYTONADIONE
     Indication: Vitamin supplementation
  6. SPIRONOLACTONE [Concomitant]
     Active Substance: SPIRONOLACTONE
     Indication: Product used for unknown indication
  7. PROTONIX [Concomitant]
     Active Substance: PANTOPRAZOLE SODIUM
     Indication: Product used for unknown indication
  8. TRAZODONE [Concomitant]
     Active Substance: TRAZODONE HYDROCHLORIDE
     Indication: Insomnia
     Route: 048
  9. TRAZODONE [Concomitant]
     Active Substance: TRAZODONE HYDROCHLORIDE
     Indication: Insomnia
  10. VITAMIN D [Concomitant]
     Active Substance: VITAMIN D NOS
     Indication: Vitamin supplementation
  11. ESTRADIOL [Concomitant]
     Active Substance: ESTRADIOL
     Indication: Product used for unknown indication
     Dosage: FORM STRENGTH: 0.01 PERCENT?FREQUENCY TEXT: 2-3 TIMES EVERY WEEK
     Route: 067
  12. JANSSEN COVID-19 VACCINE [Concomitant]
     Active Substance: AD26.COV2.S
     Indication: COVID-19 immunisation
     Route: 030
  13. FOLIC ACID [Concomitant]
     Active Substance: FOLIC ACID
     Indication: Product used for unknown indication
     Route: 065
  14. VITAMIN B COMPLEX [Concomitant]
     Active Substance: CYANOCOBALAMIN\DEXPANTHENOL\NIACINAMIDE\PYRIDOXINE HYDROCHLORIDE\RIBOFLAVIN 5^-PHOSPHATE SODIUM\THIA
     Indication: Vitamin supplementation
  15. INSULIN NOS [Concomitant]
     Active Substance: INSULIN NOS
     Indication: Diabetes mellitus
     Route: 065
  16. HYDRALAZINE [Concomitant]
     Active Substance: HYDRALAZINE HYDROCHLORIDE
     Indication: Hypertension
     Route: 065
  17. LEVOTHYROXINE [Concomitant]
     Active Substance: LEVOTHYROXINE
     Indication: Thyroid therapy
     Route: 065
  18. LOSARTAN [Concomitant]
     Active Substance: LOSARTAN
     Indication: Hypertension
     Route: 065
  19. LEVOTHYROXINE [Concomitant]
     Active Substance: LEVOTHYROXINE
     Indication: Thyroid disorder
  20. Lancets,Ultra Thin [Concomitant]
     Indication: Product used for unknown indication
  21. METOPROLOL SUCCINATE [Concomitant]
     Active Substance: METOPROLOL SUCCINATE
     Indication: Product used for unknown indication
     Route: 048
  22. HYDRALAZINE [Concomitant]
     Active Substance: HYDRALAZINE HYDROCHLORIDE
     Indication: Product used for unknown indication
  23. PROLIA [Concomitant]
     Active Substance: DENOSUMAB
     Indication: Product used for unknown indication
     Route: 058
  24. DULOXETINE [Concomitant]
     Active Substance: DULOXETINE
     Indication: Product used for unknown indication
     Dosage: FORM STRENGTH: 30 MILLIGRAM
     Route: 048
  25. Dialyvite Vitamin D3 Max 1,250 mcg (50,000 unit) tablet [Concomitant]
     Indication: Product used for unknown indication
     Route: 048
  26. JANSSEN COVID-19 VACCINE [Concomitant]
     Active Substance: AD26.COV2.S
     Indication: COVID-19 immunisation
     Route: 030
  27. MONUROL [Concomitant]
     Active Substance: FOSFOMYCIN TROMETHAMINE
     Indication: Product used for unknown indication
     Route: 048
  28. FAMOTIDINE [Concomitant]
     Active Substance: FAMOTIDINE
     Indication: Product used for unknown indication
     Route: 048
  29. Gvoke HypoPen 2-Pack [Concomitant]
     Indication: Product used for unknown indication
     Dosage: 1 MG/0.2 ML
     Route: 058
  30. CEFUROXIME AXETIL [Concomitant]
     Active Substance: CEFUROXIME AXETIL
     Indication: Urinary tract infection
     Route: 048
  31. Tresiba FlexTouch U-100 insulin [Concomitant]
     Indication: Product used for unknown indication
     Route: 058
  32. DOXYCYCLINE HYCLATE [Concomitant]
     Active Substance: DOXYCYCLINE HYCLATE
     Indication: Product used for unknown indication
     Dosage: FORM STRENGTH: 100 MILLIGRAM
     Route: 048
  33. Fiasp FlexTouch U-100 Insulin [Concomitant]
     Indication: Product used for unknown indication
     Dosage: 100 UNIT/ML (3 ML)?FREQUENCY TEXT: CHANGE EVERY 14 DAYS
     Route: 058
  34. clonidine HCI [Concomitant]
     Indication: Blood pressure measurement
     Dosage: FORM STRENGTH: 0.1 MILLIGRAM?FREQUENCY TEXT: TAKE 1 TABLET  UP TO 2 TIMES A DAY
     Route: 048

REACTIONS (10)
  - Nausea [Recovered/Resolved]
  - Discomfort [Recovered/Resolved]
  - Fatigue [Not Recovered/Not Resolved]
  - Fatigue [Recovered/Resolved]
  - Muscular weakness [Not Recovered/Not Resolved]
  - Muscular weakness [Recovered/Resolved]
  - Discomfort [Not Recovered/Not Resolved]
  - Foreign body in gastrointestinal tract [Recovered/Resolved]
  - Sensory disturbance [Not Recovered/Not Resolved]
  - Product lot number issue [Unknown]

NARRATIVE: CASE EVENT DATE: 20220916
